FAERS Safety Report 10730892 (Version 1)
Quarter: 2015Q1

REPORT INFORMATION
  Report Type: Spontaneous
  Country: DE (occurrence: DE)
  Receive Date: 20150122
  Receipt Date: 20150122
  Transmission Date: 20150721
  Serious: Yes (Other)
  Sender: FDA-Public Use
  Company Number: DE-SHIRE-DE201500461

PATIENT
  Age: 15 Year
  Sex: Male

DRUGS (1)
  1. ELVANSE [Suspect]
     Active Substance: LISDEXAMFETAMINE DIMESYLATE
     Indication: ATTENTION DEFICIT/HYPERACTIVITY DISORDER
     Dosage: 50 MG, 1X/DAY:QD (IN THE MORNING)
     Route: 048
     Dates: start: 2014

REACTIONS (2)
  - Arrhythmia [Unknown]
  - Blood pressure increased [Unknown]
